FAERS Safety Report 8798832 (Version 9)
Quarter: 2013Q3

REPORT INFORMATION
  Report Type: Spontaneous
  Country: US (occurrence: US)
  Receive Date: 20120920
  Receipt Date: 20130904
  Transmission Date: 20140515
  Serious: Yes (Hospitalization)
  Sender: FDA-Public Use
  Company Number: US-B.I. PHARMACEUTICALS,INC./RIDGEFIELD-2012-BP-22753BP

PATIENT
  Age: 70 Year
  Sex: Female
  Weight: 59.87 kg

DRUGS (13)
  1. PRADAXA [Suspect]
     Indication: ATRIAL FIBRILLATION
     Dosage: 300 MG
     Dates: start: 20111217, end: 20120107
  2. IMDUR [Concomitant]
     Dosage: 30 MG
     Dates: start: 20050117
  3. NITROGLYCERIN [Concomitant]
  4. KLOR-CON [Concomitant]
     Dosage: 20 MEQ
     Dates: start: 20050117
  5. LASIX [Concomitant]
     Dosage: 40 MG
     Dates: start: 20050131
  6. ENALAPRIL [Concomitant]
     Dosage: 5 MG
  7. DILTIAZEM [Concomitant]
     Dosage: 180 MG
     Dates: start: 20110420
  8. COREG [Concomitant]
     Dosage: 12.5 MG
     Dates: start: 20110420
  9. CRESTOR [Concomitant]
     Dosage: 40 MG
     Dates: start: 20070405
  10. LOVAZA [Concomitant]
     Dosage: 4 G
     Dates: start: 20100804
  11. MOTRIN [Concomitant]
     Dosage: 800 MG
     Dates: start: 20050201
  12. MULTAQ [Concomitant]
     Dosage: 400 MG
     Dates: start: 20111217, end: 20120107
  13. ASPIRIN [Concomitant]
     Dosage: 325 MG

REACTIONS (5)
  - Arteriovenous malformation [Unknown]
  - Loss of consciousness [Unknown]
  - Gastrointestinal haemorrhage [Recovered/Resolved]
  - Anaemia [Unknown]
  - Upper respiratory tract infection [Unknown]
